FAERS Safety Report 5217416-6 (Version None)
Quarter: 2007Q1

REPORT INFORMATION
  Report Type: 
  Country: None (occurrence: None)
  Receive Date: 20070124
  Receipt Date: 20060215
  Transmission Date: 20070707
  Serious: No
  Sender: FDA-Public Use
  Company Number: US-GLAXOSMITHKLINE-A0593849A

PATIENT
  Age: 44 Year
  Sex: Female

DRUGS (4)
  1. PAXIL CR [Suspect]
     Indication: OBSESSIVE-COMPULSIVE DISORDER
     Dosage: 50MG PER DAY
     Route: 048
     Dates: start: 20050901
  2. BONIVA [Suspect]
     Indication: DRUG USE FOR UNKNOWN INDICATION
     Dates: start: 20060201
  3. LOTRONEX [Concomitant]
  4. PREDNISONE TAB [Concomitant]

REACTIONS (1)
  - GALACTORRHOEA [None]
